FAERS Safety Report 14915382 (Version 1)
Quarter: 2018Q2

REPORT INFORMATION
  Report Type: Spontaneous
  Country: GB (occurrence: GB)
  Receive Date: 20180518
  Receipt Date: 20180518
  Transmission Date: 20180711
  Serious: Yes (Other)
  Sender: FDA-Public Use
  Company Number: GB-TEVA-2018-GB-894181

PATIENT
  Age: 36 Year
  Sex: Female

DRUGS (1)
  1. ESOMEPRAZOLE [Suspect]
     Active Substance: ESOMEPRAZOLE
     Indication: GASTROOESOPHAGEAL REFLUX DISEASE
     Route: 048
     Dates: start: 20171109, end: 20171115

REACTIONS (8)
  - Lethargy [Unknown]
  - Fatigue [Unknown]
  - Agitation [Recovered/Resolved]
  - Cough [Unknown]
  - Dyspnoea [Unknown]
  - Depression [Unknown]
  - Crying [Unknown]
  - Night sweats [Unknown]

NARRATIVE: CASE EVENT DATE: 20171111
